FAERS Safety Report 9036751 (Version 1)
Quarter: 2013Q1

REPORT INFORMATION
  Report Type: Spontaneous
  Country: US (occurrence: None)
  Receive Date: 20130118
  Receipt Date: 20130118
  Transmission Date: 20140127
  Serious: Yes (Other)
  Sender: FDA-Public Use
  Company Number: None

PATIENT
  Age: 70 Year
  Sex: Male

DRUGS (8)
  1. FINASTERIDE (PROSCAR) [Suspect]
     Indication: BENIGN PROSTATIC HYPERPLASIA
     Dates: start: 20110526, end: 20110719
  2. CRESTOR [Concomitant]
  3. LO-DOSE ASPIRIN [Concomitant]
  4. METFORMIN [Concomitant]
  5. NADOLOL [Concomitant]
  6. PROTONIX [Concomitant]
  7. FLOMAX [Concomitant]
  8. NITROGLYCERIN [Concomitant]

REACTIONS (2)
  - Drug-induced liver injury [None]
  - Hepatitis cholestatic [None]
